FAERS Safety Report 7276498-0 (Version None)
Quarter: 2011Q1

REPORT INFORMATION
  Report Type: 
  Country: None (occurrence: None)
  Receive Date: 20110204
  Receipt Date: 20110126
  Transmission Date: 20110831
  Serious: Yes (Other)
  Sender: FDA-Public Use
  Company Number: JP-ASTRAZENECA-2011SE02832

PATIENT
  Age: 32 Year
  Sex: Male
  Weight: 61.8 kg

DRUGS (3)
  1. BLONANSERIN [Concomitant]
     Indication: SCHIZOPHRENIA
     Dates: start: 20100222, end: 20100608
  2. SEROQUEL [Suspect]
     Indication: SCHIZOPHRENIA
     Route: 048
     Dates: start: 20100308, end: 20100314
  3. FLUNITRAZEPAM [Concomitant]
     Dates: start: 20090906

REACTIONS (1)
  - LIVER DISORDER [None]
